FAERS Safety Report 10169728 (Version 1)
Quarter: 2014Q2

REPORT INFORMATION
  Report Type: Report from Study
  Country: US (occurrence: US)
  Receive Date: 20140513
  Receipt Date: 20140513
  Transmission Date: 20141212
  Serious: Yes (Other)
  Sender: FDA-Public Use
  Company Number: US-GILEAD-2014-0102089

PATIENT
  Age: 69 Year
  Sex: Female

DRUGS (1)
  1. RANOLAZINE [Suspect]
     Indication: CORONARY ARTERY DISEASE
     Dosage: 500 MG, UNK
     Route: 065
     Dates: start: 201110

REACTIONS (1)
  - Coronary artery restenosis [Unknown]
